FAERS Safety Report 19415276 (Version 1)
Quarter: 2021Q2

REPORT INFORMATION
  Report Type: Spontaneous
  Country: US (occurrence: US)
  Receive Date: 20210615
  Receipt Date: 20210615
  Transmission Date: 20210717
  Serious: Yes (Other)
  Sender: FDA-Public Use
  Company Number: US-MACLEODS PHARMACEUTICALS US LTD-MAC2021031482

PATIENT

DRUGS (9)
  1. HUMAN ALPHA INTERFERON [Concomitant]
     Dosage: UNK, INCREASED TO 1.4 X 10^5 U/KG BODY WEIGHT D
     Route: 042
  2. METHOTREXATE. [Concomitant]
     Active Substance: METHOTREXATE
     Dosage: UNK, EVERY 14 DAYS TILL DAY 102
     Route: 037
  3. ACYCLOVIR. [Suspect]
     Active Substance: ACYCLOVIR
     Dosage: UNK, 3000 MG/M2 BODY SURFACE AREAD
     Route: 042
  4. HUMAN ALPHA INTERFERON [Concomitant]
     Indication: PNEUMONIA CYTOMEGALOVIRAL
     Dosage: UNK, INCREASED TO 1 X 10^5 U/KG BODY WEIGHT D
     Route: 042
  5. METHOTREXATE. [Concomitant]
     Active Substance: METHOTREXATE
     Indication: PROPHYLAXIS AGAINST GRAFT VERSUS HOST DISEASE
     Dosage: UNK
     Route: 042
  6. ACYCLOVIR. [Suspect]
     Active Substance: ACYCLOVIR
     Indication: PNEUMONIA CYTOMEGALOVIRAL
     Dosage: 3000 MG/M2 BODY SURFACE AREA. D,
     Route: 042
  7. HUMAN ALPHA INTERFERON [Concomitant]
     Dosage: UNK, 1.6 X 10^5 U/KG BODY WEIGHT D
     Route: 042
  8. HUMAN ALPHA INTERFERON [Concomitant]
     Dosage: UNK, INCREASED TO 2.0 X 10^5 U/KGD
     Route: 042
  9. METHOTREXATE. [Concomitant]
     Active Substance: METHOTREXATE
     Dosage: UNK, 10 MG/M2 BODY SURFACE AREA (WITH 12?MG MAXIMUM DOSE)
     Route: 037

REACTIONS (8)
  - CSF myelin basic protein increased [Recovered/Resolved]
  - Blood bilirubin increased [Unknown]
  - Nausea [Recovered/Resolved]
  - Lethargy [Recovered/Resolved]
  - Alanine aminotransferase increased [Unknown]
  - Tremor [Recovered/Resolved]
  - Neurotoxicity [Recovered/Resolved]
  - Agitation [Recovered/Resolved]
